FAERS Safety Report 7641836-3 (Version None)
Quarter: 2011Q3

REPORT INFORMATION
  Report Type: 
  Country: None (occurrence: None)
  Receive Date: 20110728
  Receipt Date: 20110718
  Transmission Date: 20111222
  Serious: Yes (Other)
  Sender: FDA-Public Use
  Company Number: US-ROCHE-791015

PATIENT
  Sex: Male
  Weight: 117.9 kg

DRUGS (1)
  1. ACTEMRA [Suspect]
     Indication: RHEUMATOID ARTHRITIS
     Route: 042
     Dates: start: 20110428

REACTIONS (3)
  - RASH GENERALISED [None]
  - BLISTER [None]
  - FLUSHING [None]
